FAERS Safety Report 10207561 (Version 1)
Quarter: 2014Q2

REPORT INFORMATION
  Report Type: Spontaneous
  Country: US (occurrence: US)
  Receive Date: 20140530
  Receipt Date: 20140530
  Transmission Date: 20141212
  Serious: No
  Sender: FDA-Public Use
  Company Number: US-GLAXOSMITHKLINE-A1049672A

PATIENT
  Age: 60 Year
  Sex: Female

DRUGS (9)
  1. VENTOLIN [Suspect]
     Indication: ASTHMA
     Dosage: 1SPR TWICE PER DAY
     Route: 055
     Dates: start: 20131014, end: 20131031
  2. PRAVASTATIN [Concomitant]
  3. LISINOPRIL [Concomitant]
  4. EXTRA STRENGTH TYLENOL [Concomitant]
  5. MULTIVITAMIN [Concomitant]
  6. FISH OIL [Concomitant]
  7. GARLIC [Concomitant]
  8. B12 [Concomitant]
  9. LANSOPRAZOLE [Concomitant]

REACTIONS (2)
  - Glossodynia [Not Recovered/Not Resolved]
  - Tongue discolouration [Unknown]
